FAERS Safety Report 7366308-5 (Version None)
Quarter: 2011Q1

REPORT INFORMATION
  Report Type: 
  Country: None (occurrence: None)
  Receive Date: 20110317
  Receipt Date: 20110317
  Transmission Date: 20110831
  Serious: Yes (Hospitalization)
  Sender: FDA-Public Use
  Company Number: None

PATIENT
  Sex: Female
  Weight: 93.6 kg

DRUGS (3)
  1. CARBOPLATIN [Suspect]
     Dosage: 390 MG
     Dates: end: 20110210
  2. HERCEPTIN [Suspect]
     Dosage: 190 MG
     Dates: end: 20110210
  3. DOXORUBICIN HCL [Suspect]
     Dosage: 125 MG
     Dates: end: 20110210

REACTIONS (9)
  - DIARRHOEA [None]
  - DEHYDRATION [None]
  - THROMBOCYTOPENIA [None]
  - VOMITING [None]
  - FEBRILE NEUTROPENIA [None]
  - ANAEMIA [None]
  - NAUSEA [None]
  - HYPERGLYCAEMIA [None]
  - DEEP VEIN THROMBOSIS [None]
